FAERS Safety Report 6078132-4 (Version None)
Quarter: 2009Q1

REPORT INFORMATION
  Report Type: 
  Country: None (occurrence: None)
  Receive Date: 20090213
  Receipt Date: 20090205
  Transmission Date: 20090719
  Serious: Yes (Other)
  Sender: FDA-Public Use
  Company Number: ZA-B.I. PHARMACEUTICALS,INC./RIDGEFIELD-2009-BP-01441BP

PATIENT
  Sex: Female
  Weight: 92 kg

DRUGS (9)
  1. VIRAMUNE [Suspect]
     Indication: HIV INFECTION
     Dosage: 400MG
     Route: 048
     Dates: start: 20080226
  2. TRUVADA [Suspect]
     Indication: HIV INFECTION
     Route: 048
     Dates: start: 20080226, end: 20080620
  3. TRUVADA [Suspect]
     Route: 048
     Dates: start: 20080813
  4. COMBIVIR [Suspect]
     Indication: HIV INFECTION
     Route: 048
     Dates: start: 20080620, end: 20080729
  5. BACTRIM [Concomitant]
     Dates: start: 20080213
  6. VIT B CO [Concomitant]
     Dates: start: 20080325
  7. VIT C [Concomitant]
     Dates: start: 20080325
  8. ERYTHROMYCIN [Concomitant]
     Dates: start: 20080701
  9. CANEX VAGINAL CREAM [Concomitant]
     Dates: start: 20080701

REACTIONS (1)
  - ABORTION SPONTANEOUS [None]
